FAERS Safety Report 4415188-6 (Version None)
Quarter: 2004Q3

REPORT INFORMATION
  Report Type: 
  Country: None (occurrence: None)
  Receive Date: 20040802
  Receipt Date: 20040719
  Transmission Date: 20050211
  Serious: Yes (Other)
  Sender: FDA-Public Use
  Company Number: 04-00385

PATIENT
  Sex: Male

DRUGS (2)
  1. CARBAMAZEPINE [Suspect]
     Indication: CONVULSION
     Dosage: 200MG, TWICE A DAY
  2. PHENYTOIN [Suspect]

REACTIONS (12)
  - AREFLEXIA [None]
  - BALANCE DISORDER [None]
  - COGNITIVE DETERIORATION [None]
  - CONVULSION [None]
  - COORDINATION ABNORMAL [None]
  - DRUG EFFECT DECREASED [None]
  - DRUG LEVEL BELOW THERAPEUTIC [None]
  - DYSARTHRIA [None]
  - GAIT DISTURBANCE [None]
  - HYPERTENSION [None]
  - TRANSIENT ISCHAEMIC ATTACK [None]
  - VERTIGO [None]
